FAERS Safety Report 9800196 (Version 1)
Quarter: 2014Q1

REPORT INFORMATION
  Report Type: Spontaneous
  Country: GB (occurrence: GB)
  Receive Date: 20140106
  Receipt Date: 20140106
  Transmission Date: 20141002
  Serious: Yes (Life-Threatening, Hospitalization)
  Sender: FDA-Public Use
  Company Number: PHHY2013GB154272

PATIENT
  Age: 61 Year
  Sex: Female

DRUGS (8)
  1. CO-AMOXICLAV [Suspect]
     Indication: ESCHERICHIA SEPSIS
     Route: 048
     Dates: start: 20130930, end: 20131004
  2. LACTULOSE [Concomitant]
  3. FUROSEMIDE [Concomitant]
  4. PIPERACILLIN AND TAZOBACTAM [Concomitant]
  5. SODIUM BICARBONATE [Concomitant]
  6. SPIRONOLACTONE [Concomitant]
  7. TIOTROPIUM [Concomitant]
  8. URSODEOXYCHOLIC ACID [Concomitant]

REACTIONS (2)
  - Hepatic cirrhosis [Unknown]
  - Jaundice [Unknown]
